FAERS Safety Report 4335144-6 (Version None)
Quarter: 2004Q2

REPORT INFORMATION
  Report Type: 
  Country: None (occurrence: None)
  Receive Date: 20040402
  Receipt Date: 20031219
  Transmission Date: 20050107
  Serious: No
  Sender: FDA-Public Use
  Company Number: 234543

PATIENT
  Age: 13 Year
  Sex: Female

DRUGS (1)
  1. NOVOLOG [Suspect]
     Indication: DIABETES MELLITUS INSULIN-DEPENDENT
     Dosage: SLIDING SCALE; SUBCUTANEOUS
     Route: 058
     Dates: start: 20031201, end: 20031201

REACTIONS (1)
  - HYPERSENSITIVITY [None]
